FAERS Safety Report 10626243 (Version 1)
Quarter: 2014Q4

REPORT INFORMATION
  Report Type: Spontaneous
  Country: SE (occurrence: SE)
  Receive Date: 20141204
  Receipt Date: 20141204
  Transmission Date: 20150529
  Serious: Yes (Hospitalization)
  Sender: FDA-Public Use
  Company Number: SE-WATSON-2014-25843

PATIENT
  Age: 77 Year
  Sex: Male

DRUGS (1)
  1. MIRTAZAPIN ACTAVIS [Suspect]
     Active Substance: MIRTAZAPINE
     Indication: PRODUCT USED FOR UNKNOWN INDICATION
     Dosage: UNK;^UPP EMOT^ 75-90 MG/DYGN(^UP TO^ 75-90 MG / DAY)
     Route: 048

REACTIONS (2)
  - Seizure [Unknown]
  - Balance disorder [Unknown]

NARRATIVE: CASE EVENT DATE: 20140920
